FAERS Safety Report 6026425-9 (Version None)
Quarter: 2009Q1

REPORT INFORMATION
  Report Type: 
  Country: None (occurrence: None)
  Receive Date: 20090102
  Receipt Date: 20081222
  Transmission Date: 20090719
  Serious: Yes (Hospitalization)
  Sender: FDA-Public Use
  Company Number: RU-ROCHE-500320

PATIENT
  Sex: Female
  Weight: 60 kg

DRUGS (2)
  1. CAPECITABINE [Suspect]
     Dosage: 3-WEEK CYCLES CONSISTING OF 2 WEEKS OF CAPECITABINE TREATMENT FOLLOWED BY 1 WEEK WITHOUT CAPECITABI+
     Route: 048
     Dates: start: 20070518, end: 20070527
  2. DOCETAXEL [Suspect]
     Route: 065
     Dates: start: 20070518

REACTIONS (2)
  - PLEURISY [None]
  - RESPIRATORY FAILURE [None]
